FAERS Safety Report 9916314 (Version 3)
Quarter: 2014Q2

REPORT INFORMATION
  Report Type: Spontaneous
  Country: CA (occurrence: CA)
  Receive Date: 20140221
  Receipt Date: 20140403
  Transmission Date: 20141212
  Serious: Yes (Disabling)
  Sender: FDA-Public Use
  Company Number: CA-MYLANLABS-2014S1002988

PATIENT
  Age: 63 Year
  Sex: Male

DRUGS (4)
  1. MYLAN-HYDROXYCHLOROQUINE [Suspect]
     Indication: RHEUMATOID ARTHRITIS
     Route: 048
     Dates: start: 20131220, end: 20140208
  2. MYLAN-HYDROXYCHLOROQUINE [Suspect]
     Indication: OSTEOARTHRITIS
     Route: 048
     Dates: start: 20131220, end: 20140208
  3. MYLAN-HYDROXYCHLOROQUINE [Suspect]
     Indication: ARTHRITIS
     Route: 048
     Dates: start: 20131220, end: 20140208
  4. NAPROXEN [Concomitant]
     Dosage: BID PRN
     Route: 048

REACTIONS (3)
  - Drug ineffective [Recovering/Resolving]
  - Arthritis [Recovering/Resolving]
  - Impaired work ability [Not Recovered/Not Resolved]
